FAERS Safety Report 7499215-8 (Version None)
Quarter: 2011Q2

REPORT INFORMATION
  Report Type: 
  Country: None (occurrence: None)
  Receive Date: 20110524
  Receipt Date: 20110517
  Transmission Date: 20111010
  Serious: Yes (Hospitalization, Other)
  Sender: FDA-Public Use
  Company Number: GB-JNJFOC-20101106827

PATIENT
  Age: 51 Year
  Sex: Female

DRUGS (3)
  1. ACETAMINOPHEN AND CODEINE PHOSPHATE [Suspect]
     Indication: MUSCULOSKELETAL PAIN
     Route: 065
  2. SUMATRIPTAN SUCCINATE [Suspect]
     Indication: MIGRAINE
     Route: 065
  3. PIZOTIFEN [Suspect]
     Indication: MIGRAINE
     Route: 065

REACTIONS (3)
  - CEREBROVASCULAR SPASM [None]
  - MIGRAINE [None]
  - HEADACHE [None]
